FAERS Safety Report 13085095 (Version 2)
Quarter: 2017Q1

REPORT INFORMATION
  Report Type: Spontaneous
  Country: AU (occurrence: AU)
  Receive Date: 20170104
  Receipt Date: 20170118
  Transmission Date: 20170428
  Serious: Yes (Life-Threatening, Other)
  Sender: FDA-Public Use
  Company Number: AU-IGSA-IG004974

PATIENT
  Age: 64 Year
  Sex: Male
  Weight: 98 kg

DRUGS (5)
  1. FLEBOGAMMA DIF [Suspect]
     Active Substance: HUMAN IMMUNOGLOBULIN G
     Indication: POLYNEUROPATHY
     Route: 042
     Dates: start: 20161223
  2. FLEBOGAMMA DIF [Suspect]
     Active Substance: HUMAN IMMUNOGLOBULIN G
     Indication: POLYNEUROPATHY
     Route: 042
     Dates: start: 20161031
  3. FLEBOGAMMA DIF [Suspect]
     Active Substance: HUMAN IMMUNOGLOBULIN G
     Indication: POLYNEUROPATHY
     Route: 042
     Dates: start: 20161223
  4. FLEBOGAMMA DIF [Suspect]
     Active Substance: HUMAN IMMUNOGLOBULIN G
     Indication: POLYNEUROPATHY
     Route: 042
     Dates: start: 20161223
  5. FLEBOGAMMA DIF [Suspect]
     Active Substance: HUMAN IMMUNOGLOBULIN G
     Indication: POLYNEUROPATHY
     Route: 042
     Dates: start: 20161128

REACTIONS (8)
  - Anxiety [Recovered/Resolved]
  - Emotional distress [Recovered/Resolved]
  - Flushing [Recovered/Resolved]
  - Disorientation [Recovered/Resolved]
  - Ataxia [Recovered/Resolved]
  - Chest pain [Recovered/Resolved]
  - Abdominal pain [Recovered/Resolved]
  - Back pain [Recovered/Resolved]

NARRATIVE: CASE EVENT DATE: 20161223
